FAERS Safety Report 16638776 (Version 1)
Quarter: 2019Q3

REPORT INFORMATION
  Report Type: Report from Study
  Country: IT (occurrence: IT)
  Receive Date: 20190726
  Receipt Date: 20190726
  Transmission Date: 20191004
  Serious: Yes (Other)
  Sender: FDA-Public Use
  Company Number: IT-PFIZER INC-2019316566

PATIENT
  Age: 79 Year
  Sex: Female

DRUGS (3)
  1. XANAX [Suspect]
     Active Substance: ALPRAZOLAM
     Dosage: 30 GTT, 1X/DAY
  2. SERENASE [HALOPERIDOL DECANOATE] [Suspect]
     Active Substance: HALOPERIDOL DECANOATE
     Dosage: 7 GTT, 1X/DAY
  3. TEGRETOL [Suspect]
     Active Substance: CARBAMAZEPINE
     Dosage: 400 MG, 1X/DAY

REACTIONS (2)
  - Loss of consciousness [Unknown]
  - Vertigo [Unknown]

NARRATIVE: CASE EVENT DATE: 20190416
